FAERS Safety Report 9805729 (Version 1)
Quarter: 2014Q1

REPORT INFORMATION
  Report Type: Spontaneous
  Country: US (occurrence: None)
  Receive Date: 20140108
  Receipt Date: 20140108
  Transmission Date: 20141002
  Serious: Yes (Hospitalization)
  Sender: FDA-Public Use
  Company Number: None

PATIENT
  Age: 82 Year
  Sex: Male
  Weight: 98.6 kg

DRUGS (2)
  1. INSULIN [Suspect]
     Indication: DIABETES MELLITUS
     Dates: start: 20020514
  2. INSULIN [Suspect]
     Dates: start: 20040522

REACTIONS (8)
  - Fall [None]
  - Head injury [None]
  - Hypoglycaemia [None]
  - Retroperitoneal haemorrhage [None]
  - Headache [None]
  - Neck pain [None]
  - Balance disorder [None]
  - International normalised ratio increased [None]
